FAERS Safety Report 11348728 (Version 1)
Quarter: 2015Q3

REPORT INFORMATION
  Report Type: Report from Study
  Country: CN (occurrence: CN)
  Receive Date: 20150806
  Receipt Date: 20150806
  Transmission Date: 20151125
  Serious: Yes (Other)
  Sender: FDA-Public Use
  Company Number: CN-BAXALTA-2015BAX029349

PATIENT
  Age: 4 Year
  Weight: 18 kg

DRUGS (2)
  1. OCTOCOG ALFA; BAXJECT II [Suspect]
     Active Substance: ANTIHEMOPHILIC FACTOR, HUMAN RECOMBINANT
     Indication: HAEMOPHILIA
     Dosage: UNK, LOW DOSAGE TREATEMTN
     Route: 065
     Dates: start: 20140201
  2. OCTOCOG ALFA; BAXJECT II [Suspect]
     Active Substance: ANTIHEMOPHILIC FACTOR, HUMAN RECOMBINANT
     Indication: HAEMORRHAGE
     Dosage: UNK
     Route: 065
     Dates: start: 20140201

REACTIONS (2)
  - Haemarthrosis [Unknown]
  - Haemorrhage [Unknown]
